FAERS Safety Report 7795041-0 (Version None)
Quarter: 2011Q4

REPORT INFORMATION
  Report Type: 
  Country: None (occurrence: None)
  Receive Date: 20111004
  Receipt Date: 20110923
  Transmission Date: 20120403
  Serious: Yes (Hospitalization)
  Sender: FDA-Public Use
  Company Number: CZ-JNJFOC-20110804498

PATIENT
  Sex: Male

DRUGS (3)
  1. REMICADE [Suspect]
     Indication: PSORIATIC ARTHROPATHY
     Route: 042
     Dates: start: 20110512
  2. REMICADE [Suspect]
     Route: 042
     Dates: start: 20100412
  3. REMICADE [Suspect]
     Route: 042
     Dates: start: 20110307

REACTIONS (1)
  - ATRIAL FIBRILLATION [None]
